FAERS Safety Report 7734461-7 (Version None)
Quarter: 2011Q3

REPORT INFORMATION
  Report Type: 
  Country: None (occurrence: None)
  Receive Date: 20110907
  Receipt Date: 20110831
  Transmission Date: 20111222
  Serious: Yes (Disabling, Other)
  Sender: FDA-Public Use
  Company Number: BR-PFIZER INC-2009275596

PATIENT
  Age: 41 Year
  Sex: Female
  Weight: 74.83 kg

DRUGS (10)
  1. LYRICA [Suspect]
     Indication: FIBROMYALGIA
     Dosage: UNK
     Route: 048
     Dates: start: 20060101
  2. LYRICA [Suspect]
     Dosage: 225 MG
     Route: 048
  3. LYRICA [Suspect]
     Dosage: 450 MG
     Route: 048
  4. ATENOLOL/HYDROCHLOROTHIAZIDE [Concomitant]
     Indication: HYPERTENSION
     Dosage: UNK
     Dates: start: 20050101
  5. OMEPRAZOLE [Concomitant]
     Dosage: UNK
  6. CYMBALTA [Suspect]
     Indication: ANXIETY
     Dosage: 60 MG
     Dates: start: 20090601, end: 20090801
  7. LYRICA [Suspect]
     Dosage: 150 MG, 1X/DAY
     Route: 048
  8. LYRICA [Suspect]
     Dosage: 150 MG, 2X/DAY
     Route: 048
  9. LYRICA [Suspect]
     Indication: SLEEP DISORDER
     Dosage: 75 MG
     Route: 048
     Dates: start: 20090601
  10. MIOSAN [Concomitant]
     Indication: RELAXATION THERAPY
     Dosage: UNK

REACTIONS (20)
  - OEDEMA [None]
  - LIVER DISORDER [None]
  - ARTHRALGIA [None]
  - SOMNOLENCE [None]
  - FATIGUE [None]
  - FALL [None]
  - FLUID RETENTION [None]
  - PAIN [None]
  - INSOMNIA [None]
  - SYNCOPE [None]
  - HEAD INJURY [None]
  - WEIGHT INCREASED [None]
  - DRUG INEFFECTIVE [None]
  - LOSS OF CONSCIOUSNESS [None]
  - ROAD TRAFFIC ACCIDENT [None]
  - OEDEMA PERIPHERAL [None]
  - DEFORMITY [None]
  - INCORRECT DOSE ADMINISTERED [None]
  - PEAU D'ORANGE [None]
  - DRY MOUTH [None]
